FAERS Safety Report 7034854-X (Version None)
Quarter: 2010Q4

REPORT INFORMATION
  Report Type: 
  Country: None (occurrence: None)
  Receive Date: 20101008
  Receipt Date: 20100930
  Transmission Date: 20110411
  Serious: Yes (Life-Threatening)
  Sender: FDA-Public Use
  Company Number: JP-ROCHE-725205

PATIENT
  Sex: Female
  Weight: 58 kg

DRUGS (10)
  1. ACTEMRA [Suspect]
     Indication: RHEUMATOID ARTHRITIS
     Route: 041
     Dates: start: 20100120, end: 20100706
  2. REMICADE [Suspect]
     Indication: RHEUMATOID ARTHRITIS
     Route: 041
     Dates: start: 20090803, end: 20091001
  3. ENBREL [Suspect]
     Indication: RHEUMATOID ARTHRITIS
     Route: 058
  4. ENBREL [Suspect]
     Route: 058
     Dates: start: 20091102, end: 20100101
  5. METHOTREXATE [Suspect]
     Indication: RHEUMATOID ARTHRITIS
     Route: 048
     Dates: end: 20091001
  6. CRESTOR [Concomitant]
     Route: 048
     Dates: start: 20100414
  7. PREDNISOLONE [Concomitant]
     Route: 048
     Dates: end: 20100510
  8. PREDNISOLONE [Concomitant]
     Route: 048
     Dates: start: 20100511, end: 20100608
  9. PREDNISOLONE [Concomitant]
     Route: 048
     Dates: start: 20100609, end: 20100705
  10. PREDNISOLONE [Concomitant]
     Route: 048
     Dates: start: 20100706

REACTIONS (2)
  - BREAST CANCER [None]
  - LOW DENSITY LIPOPROTEIN INCREASED [None]
